FAERS Safety Report 14627532 (Version 2)
Quarter: 2018Q1

REPORT INFORMATION
  Report Type: Report from Study
  Country: ES (occurrence: ES)
  Receive Date: 20180312
  Receipt Date: 20180315
  Transmission Date: 20180509
  Serious: Yes (Other)
  Sender: FDA-Public Use
  Company Number: ES-PFIZER INC-2018096863

PATIENT
  Age: 86 Year
  Sex: Female

DRUGS (9)
  1. DIGOXINA [Concomitant]
     Active Substance: DIGOXIN
     Dosage: 0.25, 1X/DAY
     Dates: start: 20170320
  2. OMEPRAZOL [Concomitant]
     Active Substance: OMEPRAZOLE
     Dosage: 20 MG, 1X/DAY
  3. ONDANSETRON [Concomitant]
     Active Substance: ONDANSETRON
     Dosage: 4 MG, EVERY 8 HOURS
     Dates: start: 20170323
  4. PIPERACILLIN/TAZOBACTAM [Suspect]
     Active Substance: PIPERACILLIN SODIUM\TAZOBACTAM SODIUM
     Dosage: 4 G, EVERY 8 HOURS
     Route: 042
     Dates: start: 20170321
  5. PARACETAMOL [Concomitant]
     Active Substance: ACETAMINOPHEN
     Dosage: 1 G, EVERY 8 HOURS
  6. ACENOCOUMAROL [Interacting]
     Active Substance: ACENOCOUMAROL
     Dosage: 2 MG, 1X/DAY
     Route: 048
     Dates: start: 201702, end: 20170324
  7. ALOPURINOL [Concomitant]
     Active Substance: ALLOPURINOL
     Dosage: 100 MG, 1X/DAY
  8. FUROSEMIDA [Concomitant]
     Active Substance: FUROSEMIDE
     Dosage: 20 MG, EVERY 8 HOURS
  9. FENTANILO [Concomitant]
     Active Substance: FENTANYL
     Dosage: 100 UG, AS NEEDED

REACTIONS (2)
  - Hypocoagulable state [Recovered/Resolved]
  - Drug interaction [Unknown]

NARRATIVE: CASE EVENT DATE: 20170324
